FAERS Safety Report 6986472-7 (Version None)
Quarter: 2010Q3

REPORT INFORMATION
  Report Type: 
  Country: None (occurrence: None)
  Receive Date: 20100915
  Receipt Date: 20090702
  Transmission Date: 20110219
  Serious: No
  Sender: FDA-Public Use
  Company Number: US-WYE-H10044009

PATIENT
  Sex: Female

DRUGS (3)
  1. PRISTIQ [Suspect]
     Route: 048
     Dates: start: 20090501, end: 20090601
  2. PRISTIQ [Suspect]
     Route: 048
     Dates: start: 20090601
  3. DESIPRAMINE HCL [Suspect]
     Indication: ABDOMINAL PAIN UPPER
     Dosage: UNSPECIFIED
     Route: 065

REACTIONS (3)
  - ABDOMINAL PAIN UPPER [None]
  - INTENTIONAL DRUG MISUSE [None]
  - SLEEP DISORDER [None]
